FAERS Safety Report 25739815 (Version 1)
Quarter: 2025Q3

REPORT INFORMATION
  Report Type: Spontaneous
  Country: US (occurrence: None)
  Receive Date: 20250828
  Receipt Date: 20250828
  Transmission Date: 20251021
  Serious: Yes (Hospitalization)
  Sender: FDA-CTU
  Company Number: None

PATIENT
  Age: 31 Year
  Sex: Male

DRUGS (5)
  1. HUMIRA [Suspect]
     Active Substance: ADALIMUMAB
     Indication: Crohn^s disease
     Dosage: 40MG EVERY OTHER WEEK SUBCUTANEOUS?
     Route: 058
     Dates: start: 20220830
  2. FAMOTIDINE [Concomitant]
     Active Substance: FAMOTIDINE
  3. HYDROCOD/ACETAMINOPHEN [Concomitant]
  4. ONDANSETRON 2MG/ML INJ, 2ML [Concomitant]
  5. OMEPRAZOLE [Concomitant]
     Active Substance: OMEPRAZOLE

REACTIONS (1)
  - Ulcer haemorrhage [None]

NARRATIVE: CASE EVENT DATE: 20250826
